FAERS Safety Report 7047020-9 (Version None)
Quarter: 2010Q4

REPORT INFORMATION
  Report Type: 
  Country: None (occurrence: None)
  Receive Date: 20101012
  Receipt Date: 20100929
  Transmission Date: 20110411
  Serious: Yes (Death, Hospitalization)
  Sender: FDA-Public Use
  Company Number: 144-50794-10051816

PATIENT

DRUGS (2)
  1. VIDAZA [Suspect]
     Indication: MYELODYSPLASTIC SYNDROME
     Dosage: 75 MG/M2, 5 IN 28 D, INTRAVENOUS
     Route: 042
  2. ONDASETRON (ONDANSETRON) [Concomitant]

REACTIONS (22)
  - ACUTE MYELOID LEUKAEMIA [None]
  - CARDIOTOXICITY [None]
  - CHEST PAIN [None]
  - CHOLECYSTITIS [None]
  - DEMENTIA ALZHEIMER'S TYPE [None]
  - DIARRHOEA [None]
  - DRUG TOXICITY [None]
  - FEBRILE NEUTROPENIA [None]
  - HAEMORRHAGE [None]
  - HEPATIC CIRRHOSIS [None]
  - INFECTION [None]
  - IRON DEFICIENCY [None]
  - MALIGNANT NEOPLASM PROGRESSION [None]
  - NO THERAPEUTIC RESPONSE [None]
  - PNEUMONIA [None]
  - PNEUMONIA FUNGAL [None]
  - RECTAL HAEMORRHAGE [None]
  - RENAL FAILURE CHRONIC [None]
  - RESPIRATORY TRACT INFECTION [None]
  - SEPTIC SHOCK [None]
  - TEMPORAL ARTERITIS [None]
  - THROMBOCYTOPENIA [None]
